FAERS Safety Report 15312514 (Version 2)
Quarter: 2018Q4

REPORT INFORMATION
  Report Type: Spontaneous
  Country: US (occurrence: US)
  Receive Date: 20180823
  Receipt Date: 20180924
  Transmission Date: 20190204
  Serious: No
  Sender: FDA-Public Use
  Company Number: US-SA-2018SA230702

PATIENT
  Age: 72 Year
  Sex: Female
  Weight: 87.99 kg

DRUGS (2)
  1. ALLEGRA INTENSIVE RELIEF ANTI-ITCH [Suspect]
     Active Substance: ALLANTOIN\DIPHENHYDRAMINE HYDROCHLORIDE
     Indication: PRURITUS
     Dosage: UNK
     Route: 065
     Dates: start: 20180701
  2. BENADRYL ORIGINAL STRENGTH ITCH STOPPING [Concomitant]
     Active Substance: DIPHENHYDRAMINE HYDROCHLORIDE\ZINC ACETATE

REACTIONS (1)
  - Expired product administered [Unknown]
